FAERS Safety Report 9507060 (Version 1)
Quarter: 2013Q1

REPORT INFORMATION
  Report Type: Spontaneous
  Country: US (occurrence: None)
  Receive Date: 20130301
  Receipt Date: 20130301
  Transmission Date: 20140127
  Serious: Yes (Death)
  Sender: FDA-Public Use
  Company Number: DKLU1076216

PATIENT
  Age: 50 Year
  Sex: Male

DRUGS (2)
  1. DESOXYN [Suspect]
     Indication: PRODUCT USED FOR UNKNOWN INDICATION
  2. TRAZODONE [Suspect]

REACTIONS (2)
  - Cardio-respiratory arrest [None]
  - Drug abuse [None]
